FAERS Safety Report 4387093-5 (Version None)
Quarter: 2004Q2

REPORT INFORMATION
  Report Type: 
  Country: None (occurrence: None)
  Receive Date: 20040630
  Receipt Date: 20040308
  Transmission Date: 20050107
  Serious: No
  Sender: FDA-Public Use
  Company Number: US-GLAXOSMITHKLINE-A0501601A

PATIENT
  Age: 55 Year
  Sex: Female

DRUGS (5)
  1. ADVAIR HFA [Suspect]
     Indication: ASTHMA
     Dosage: 1PUFF TWICE PER DAY
     Route: 055
     Dates: start: 20040301
  2. VENTOLIN [Suspect]
  3. ZYRTEC [Concomitant]
  4. FLONASE [Concomitant]
  5. PREDNISONE [Concomitant]

REACTIONS (3)
  - ASTHMA [None]
  - COUGH [None]
  - RESPIRATORY TRACT CONGESTION [None]
